FAERS Safety Report 5655211-4 (Version None)
Quarter: 2008Q1

REPORT INFORMATION
  Report Type: 
  Country: None (occurrence: None)
  Receive Date: 20080307
  Receipt Date: 20080226
  Transmission Date: 20080703
  Serious: Yes (Life-Threatening, Hospitalization)
  Sender: FDA-Public Use
  Company Number: US-ROCHE-532518

PATIENT
  Age: 90 Year
  Sex: Female
  Weight: 62.6 kg

DRUGS (1)
  1. BONIVA [Suspect]
     Indication: OSTEOPENIA
     Route: 042
     Dates: start: 20070215, end: 20071120

REACTIONS (4)
  - BREAST CANCER RECURRENT [None]
  - DEHYDRATION [None]
  - VASCULAR PROCEDURE COMPLICATION [None]
  - VEIN DISORDER [None]
